FAERS Safety Report 10041613 (Version 1)
Quarter: 2014Q1

REPORT INFORMATION
  Report Type: Spontaneous
  Country: ES (occurrence: None)
  Receive Date: 20140325
  Receipt Date: 20140325
  Transmission Date: 20141002
  Serious: Yes (Other)
  Sender: FDA-Public Use
  Company Number: ADR-2014-00459

PATIENT
  Age: 33 Year
  Sex: Female

DRUGS (1)
  1. COMPOUNDED BACLOFEN (INTRATHECAL) - 2000 MCG/ML [Suspect]
     Dosage: DAY

REACTIONS (2)
  - Device malfunction [None]
  - Muscle spasticity [None]
